FAERS Safety Report 5102743-3 (Version None)
Quarter: 2006Q3

REPORT INFORMATION
  Report Type: 
  Country: None (occurrence: None)
  Receive Date: 20060907
  Receipt Date: 20060822
  Transmission Date: 20061208
  Serious: Yes (Death, Life-Threatening)
  Sender: FDA-Public Use
  Company Number: JP_050707170

PATIENT
  Age: 72 Year
  Sex: Female

DRUGS (2)
  1. GEMZAR [Suspect]
     Indication: PANCREATIC CARCINOMA STAGE IV
     Dosage: 500 MG/BODY; INTRAVENOUS
     Route: 042
     Dates: start: 20050511, end: 20050706
  2. THERAPEUTIC RADIOPHARMACEUTICALS [Concomitant]

REACTIONS (6)
  - BLOOD LACTATE DEHYDROGENASE INCREASED [None]
  - LABORATORY TEST ABNORMAL [None]
  - NEOPLASM PROGRESSION [None]
  - PNEUMONITIS [None]
  - PO2 DECREASED [None]
  - THERAPY NON-RESPONDER [None]
